FAERS Safety Report 19434396 (Version 1)
Quarter: 2021Q2

REPORT INFORMATION
  Report Type: Spontaneous
  Country: US (occurrence: US)
  Receive Date: 20210618
  Receipt Date: 20210618
  Transmission Date: 20210717
  Serious: Yes (Other)
  Sender: FDA-Public Use
  Company Number: US-REGENERON PHARMACEUTICALS, INC.-2021-60946

PATIENT

DRUGS (1)
  1. EYLEA [Suspect]
     Active Substance: AFLIBERCEPT
     Indication: NEOVASCULAR AGE-RELATED MACULAR DEGENERATION
     Route: 031

REACTIONS (5)
  - Bacterial endophthalmitis [Unknown]
  - Blindness [Recovering/Resolving]
  - Inadequate aseptic technique in use of product [Unknown]
  - Eye haemorrhage [Recovering/Resolving]
  - Corneal oedema [Unknown]
